FAERS Safety Report 22012260 (Version 1)
Quarter: 2023Q1

REPORT INFORMATION
  Report Type: Report from Study
  Country: US (occurrence: US)
  Receive Date: 20230220
  Receipt Date: 20230220
  Transmission Date: 20230418
  Serious: Yes (Hospitalization)
  Sender: FDA-Public Use
  Company Number: US-DSJP-DSU-2022-147513

PATIENT
  Sex: Male

DRUGS (4)
  1. ENHERTU [Suspect]
     Active Substance: FAM-TRASTUZUMAB DERUXTECAN-NXKI
     Indication: Lung cancer metastatic
     Dosage: 5.4 MG/KG, ONCE EVERY 3 WK
     Route: 042
     Dates: start: 20220629, end: 202302
  2. ENHERTU [Suspect]
     Active Substance: FAM-TRASTUZUMAB DERUXTECAN-NXKI
     Indication: Metastases to central nervous system
     Dosage: UNK UNK, ONCE EVERY 3 WK
     Route: 042
     Dates: start: 20220719, end: 2022
  3. ENHERTU [Suspect]
     Active Substance: FAM-TRASTUZUMAB DERUXTECAN-NXKI
     Dosage: 345.384 MG, ONCE EVERY 3 WK
     Route: 042
     Dates: start: 20220722, end: 2022
  4. ENHERTU [Suspect]
     Active Substance: FAM-TRASTUZUMAB DERUXTECAN-NXKI
     Dosage: 325 MG, ONCE EVERY 3 WK
     Route: 042
     Dates: start: 20221230

REACTIONS (7)
  - Performance status decreased [Unknown]
  - Hypersomnia [Unknown]
  - Asthenia [Unknown]
  - Dyspnoea [Unknown]
  - Weight decreased [Unknown]
  - Off label use [Not Recovered/Not Resolved]
  - Therapy cessation [Unknown]

NARRATIVE: CASE EVENT DATE: 20220101
